FAERS Safety Report 16365261 (Version 1)
Quarter: 2019Q2

REPORT INFORMATION
  Report Type: Spontaneous
  Country: US (occurrence: US)
  Receive Date: 20190529
  Receipt Date: 20190529
  Transmission Date: 20190711
  Serious: Yes (Death)
  Sender: FDA-Public Use
  Company Number: US-ASTRAZENECA-2019SE78065

PATIENT
  Sex: Female
  Weight: 54.4 kg

DRUGS (1)
  1. LYNPARZA [Suspect]
     Active Substance: OLAPARIB
     Indication: BREAST CANCER FEMALE
     Dosage: LYNPARZA 2 IN THE MORNING AND 2 IN THE EVENING
     Route: 048
     Dates: start: 201903

REACTIONS (2)
  - Malignant neoplasm progression [Fatal]
  - Dysphagia [Fatal]
